FAERS Safety Report 7112604-6 (Version None)
Quarter: 2010Q4

REPORT INFORMATION
  Report Type: 
  Country: None (occurrence: None)
  Receive Date: 20101119
  Receipt Date: 20100415
  Transmission Date: 20110411
  Serious: No
  Sender: FDA-Public Use
  Company Number: US-TEVA-228862USA

PATIENT
  Sex: Male
  Weight: 23.608 kg

DRUGS (1)
  1. ALBUTEROL SULFATE AUTOHALER [Suspect]
     Indication: ASTHMA
     Route: 055
     Dates: start: 20100317

REACTIONS (3)
  - DYSGEUSIA [None]
  - HYPOAESTHESIA ORAL [None]
  - RETCHING [None]
